FAERS Safety Report 16843872 (Version 1)
Quarter: 2019Q3

REPORT INFORMATION
  Report Type: Spontaneous
  Country: US (occurrence: US)
  Receive Date: 20190924
  Receipt Date: 20190924
  Transmission Date: 20191005
  Serious: No
  Sender: FDA-Public Use
  Company Number: US-BAYER-2019-173521

PATIENT
  Age: 20 Year
  Sex: Female
  Weight: 59 kg

DRUGS (2)
  1. SINGULAIR [Concomitant]
     Active Substance: MONTELUKAST SODIUM
     Dosage: UNK
  2. CLARITIN-D 24 HOUR [Suspect]
     Active Substance: LORATADINE\PSEUDOEPHEDRINE SULFATE
     Indication: TOOTHACHE
     Dosage: 1 DF
     Route: 048

REACTIONS (2)
  - Product use in unapproved indication [Unknown]
  - Poor quality sleep [Recovered/Resolved]
